FAERS Safety Report 10105538 (Version 2)
Quarter: 2014Q2

REPORT INFORMATION
  Report Type: Other
  Country: US (occurrence: US)
  Receive Date: 20140424
  Receipt Date: 20140623
  Transmission Date: 20141212
  Serious: Yes (Hospitalization, Other)
  Sender: FDA-Public Use
  Company Number: US-GSKPPD-2014GSK002145

PATIENT
  Age: 77 Year
  Sex: Male

DRUGS (8)
  1. AVANDIA [Suspect]
     Indication: DIABETES MELLITUS
     Route: 048
     Dates: start: 20060216, end: 20080914
  2. ASPIRIN [Concomitant]
  3. PLAVIX [Concomitant]
  4. TENORETIC [Concomitant]
     Dosage: 100/25 MG
  5. COLESTID [Concomitant]
     Dosage: 1 GM
  6. ENALAPRIL [Concomitant]
  7. NIFEDIPINE [Concomitant]
  8. ZOCOR [Concomitant]

REACTIONS (2)
  - Coronary arterial stent insertion [Recovered/Resolved]
  - Coronary artery disease [Recovered/Resolved]
